FAERS Safety Report 6282461-9 (Version None)
Quarter: 2009Q3

REPORT INFORMATION
  Report Type: 
  Country: None (occurrence: None)
  Receive Date: 20090721
  Receipt Date: 20090721
  Transmission Date: 20100115
  Serious: Yes (Hospitalization, Other)
  Sender: FDA-Public Use
  Company Number: None

PATIENT
  Age: 36 Year
  Sex: Male
  Weight: 72.5755 kg

DRUGS (2)
  1. AZITHROMYCIN [Suspect]
     Indication: SINUSITIS
     Dosage: 1000 MG ONCE A DAY PO (ONE TIME FIRST DAY)
     Route: 048
  2. SYNTHROID [Concomitant]

REACTIONS (11)
  - COGNITIVE DISORDER [None]
  - CONSTIPATION [None]
  - FATIGUE [None]
  - HEARING IMPAIRED [None]
  - HYPOAESTHESIA [None]
  - MEMORY IMPAIRMENT [None]
  - MUSCLE SPASMS [None]
  - SLEEP DISORDER [None]
  - TACHYCARDIA [None]
  - TINNITUS [None]
  - WEIGHT DECREASED [None]
